FAERS Safety Report 5856479-1 (Version None)
Quarter: 2008Q3

REPORT INFORMATION
  Report Type: 
  Country: None (occurrence: None)
  Receive Date: 20080825
  Receipt Date: 20080527
  Transmission Date: 20090109
  Serious: No
  Sender: FDA-Public Use
  Company Number: A0729712A

PATIENT

DRUGS (1)
  1. VERAMYST [Suspect]
     Route: 045

REACTIONS (2)
  - DIZZINESS [None]
  - FEELING ABNORMAL [None]
